FAERS Safety Report 20994143 (Version 1)
Quarter: 2022Q2

REPORT INFORMATION
  Report Type: Spontaneous
  Country: FR (occurrence: FR)
  Receive Date: 20220622
  Receipt Date: 20220622
  Transmission Date: 20220721
  Serious: Yes (Hospitalization)
  Sender: FDA-Public Use
  Company Number: None

PATIENT
  Age: 71 Year
  Sex: Female
  Weight: 83 kg

DRUGS (6)
  1. TRAMADOL [Interacting]
     Active Substance: TRAMADOL
     Indication: Procedural pain
     Dosage: 50 MILLIGRAM, QD, (1 CAPSULE OF TRAMADOL DAILY)
     Route: 048
     Dates: start: 20210809, end: 20210811
  2. NEURONTIN [Interacting]
     Active Substance: GABAPENTIN
     Indication: Procedural pain
     Dosage: 300 MILLIGRAM, (3 CAPSULES PER DAY OF NEURONTIN)
     Route: 048
     Dates: start: 20210809, end: 20210814
  3. LEVOTHYROXINE [Concomitant]
     Active Substance: LEVOTHYROXINE
     Dosage: UNK
  4. TOUJEO [Concomitant]
     Active Substance: INSULIN GLARGINE
     Dosage: UNK
  5. ALDACTONE [Concomitant]
     Active Substance: SPIRONOLACTONE
     Dosage: UNK
  6. HUMALOG [Concomitant]
     Active Substance: INSULIN LISPRO
     Dosage: UNK

REACTIONS (5)
  - Speech disorder [Recovered/Resolved]
  - Nausea [Recovered/Resolved]
  - Dizziness [Recovered/Resolved]
  - Somnolence [Recovered/Resolved]
  - Drug interaction [Unknown]

NARRATIVE: CASE EVENT DATE: 20210814
